FAERS Safety Report 10750734 (Version 2)
Quarter: 2015Q1

REPORT INFORMATION
  Report Type: Report from Study
  Country: US (occurrence: US)
  Receive Date: 20150130
  Receipt Date: 20150203
  Transmission Date: 20150721
  Serious: Yes (Hospitalization)
  Sender: FDA-Public Use
  Company Number: US-BAYER-2015-011701

PATIENT
  Age: 78 Year
  Sex: Female

DRUGS (1)
  1. ADEMPAS [Suspect]
     Active Substance: RIOCIGUAT
     Indication: PULMONARY ARTERIAL HYPERTENSION
     Dosage: 2.5 MG, TID
     Route: 048
     Dates: start: 20131213, end: 20150108

REACTIONS (6)
  - Gastric mucosal lesion [None]
  - Pulmonary pain [None]
  - Pneumonia [None]
  - Abdominal pain upper [Unknown]
  - Gastritis [None]
  - Pain [None]
